FAERS Safety Report 18203698 (Version 1)
Quarter: 2020Q3

REPORT INFORMATION
  Report Type: Spontaneous
  Country: US (occurrence: US)
  Receive Date: 20200827
  Receipt Date: 20200827
  Transmission Date: 20201103
  Serious: No
  Sender: FDA-Public Use
  Company Number: US-TARO-2019TAR00866

PATIENT
  Sex: Male

DRUGS (1)
  1. TERBINAFINE HCL CREAM 1% (JOCK ITCH) [Suspect]
     Active Substance: TERBINAFINE HYDROCHLORIDE
     Indication: TINEA CRURIS
     Dosage: UNK
     Route: 061
     Dates: start: 201912

REACTIONS (2)
  - Incorrect product administration duration [Not Recovered/Not Resolved]
  - Therapeutic product effect incomplete [Not Recovered/Not Resolved]

NARRATIVE: CASE EVENT DATE: 201912
